FAERS Safety Report 6217214-0 (Version None)
Quarter: 2009Q2

REPORT INFORMATION
  Report Type: 
  Country: None (occurrence: None)
  Receive Date: 20090608
  Receipt Date: 20090526
  Transmission Date: 20091009
  Serious: Yes (Hospitalization)
  Sender: FDA-Public Use
  Company Number: CA-PFIZER INC-2009218647

PATIENT

DRUGS (6)
  1. SILDENAFIL CITRATE [Suspect]
     Indication: ERECTILE DYSFUNCTION
     Dosage: UNK
     Route: 048
     Dates: start: 20040101
  2. LIPITOR [Interacting]
     Dosage: 20 MG, 1X/DAY
     Route: 048
  3. NORVASC [Interacting]
     Dosage: 10 MG, 1X/DAY
     Route: 048
  4. PLAVIX [Interacting]
     Dosage: 75 MG, 1X/DAY
  5. FLOMAX [Interacting]
     Dosage: 0.4 MG, 1X/DAY
     Route: 048
  6. DITROPAN [Interacting]
     Dosage: 5 MG, 2X/DAY
     Route: 048

REACTIONS (3)
  - CEREBROVASCULAR ACCIDENT [None]
  - DRUG INEFFECTIVE [None]
  - DRUG INTERACTION [None]
